FAERS Safety Report 21086354 (Version 2)
Quarter: 2022Q3

REPORT INFORMATION
  Report Type: Spontaneous
  Country: ES (occurrence: ES)
  Receive Date: 20220715
  Receipt Date: 20220923
  Transmission Date: 20221027
  Serious: Yes (Hospitalization, Other)
  Sender: FDA-Public Use
  Company Number: ES-MLMSERVICE-20220608-3598173-1

PATIENT
  Age: 13 Year
  Sex: Female

DRUGS (4)
  1. MORPHINE [Suspect]
     Active Substance: MORPHINE
     Indication: Suicidal ideation
     Dosage: 300 MILLIGRAM, DELAYED-RELEASE
     Route: 065
  2. TRAMADOL [Suspect]
     Active Substance: TRAMADOL
     Indication: Suicidal ideation
     Dosage: UNK
     Route: 065
  3. TRAMADOL [Suspect]
     Active Substance: TRAMADOL
     Indication: Suicidal ideation
     Route: 065
  4. MORPHINE [Suspect]
     Active Substance: MORPHINE
     Indication: Suicidal ideation
     Dosage: DELAYED-RELEASE
     Route: 065

REACTIONS (26)
  - Depressed level of consciousness [Not Recovered/Not Resolved]
  - Vomiting [Recovered/Resolved]
  - Bradyphrenia [Recovered/Resolved]
  - Hyperamylasaemia [Recovered/Resolved]
  - Headache [Recovered/Resolved]
  - Overdose [Recovered/Resolved]
  - Leukocytosis [Recovered/Resolved]
  - Somnolence [Recovered/Resolved]
  - Respiratory depression [Recovered/Resolved]
  - Troponin I increased [Recovering/Resolving]
  - Urinary retention [Recovered/Resolved]
  - Miosis [Recovered/Resolved]
  - Abdominal pain [Recovered/Resolved]
  - Abdominal pain [Recovered/Resolved]
  - Miosis [Recovered/Resolved]
  - Troponin I increased [Recovering/Resolving]
  - Overdose [Recovered/Resolved]
  - Leukocytosis [Recovered/Resolved]
  - Hyperamylasaemia [Recovered/Resolved]
  - Bradyphrenia [Recovered/Resolved]
  - Urinary retention [Recovered/Resolved]
  - Vomiting [Recovered/Resolved]
  - Headache [Recovered/Resolved]
  - Respiratory depression [Recovered/Resolved]
  - Depressed level of consciousness [Not Recovered/Not Resolved]
  - Somnolence [Recovered/Resolved]
